FAERS Safety Report 25491376 (Version 1)
Quarter: 2025Q2

REPORT INFORMATION
  Report Type: Spontaneous
  Country: CA (occurrence: CA)
  Receive Date: 20250629
  Receipt Date: 20250629
  Transmission Date: 20250716
  Serious: Yes (Life-Threatening, Hospitalization, Other)
  Sender: TEVA
  Company Number: CA-TEVA-VS-3343680

PATIENT
  Age: 63 Year
  Sex: Female
  Weight: 48 kg

DRUGS (4)
  1. AMIODARONE [Suspect]
     Active Substance: AMIODARONE
     Indication: Atrial fibrillation
     Route: 048
  2. AMIODARONE HYDROCHLORIDE [Suspect]
     Active Substance: AMIODARONE HYDROCHLORIDE
     Indication: Atrial fibrillation
     Route: 065
  3. DILANTIN INFATABS [Suspect]
     Active Substance: PHENYTOIN
     Indication: Partial seizures
     Route: 048
  4. TEGRETOL [Suspect]
     Active Substance: CARBAMAZEPINE
     Indication: Partial seizures
     Dosage: CR
     Route: 048

REACTIONS (4)
  - Accidental poisoning [Recovering/Resolving]
  - Altered state of consciousness [Recovering/Resolving]
  - Diplopia [Recovering/Resolving]
  - Dyskinesia [Recovering/Resolving]
